FAERS Safety Report 11095515 (Version 1)
Quarter: 2015Q2

REPORT INFORMATION
  Report Type: Report from Study
  Country: DE (occurrence: DE)
  Receive Date: 20150506
  Receipt Date: 20150506
  Transmission Date: 20150821
  Serious: Yes (Hospitalization, Other)
  Sender: FDA-Public Use
  Company Number: DE-BAXTER-2015BAX021644

PATIENT
  Sex: Male

DRUGS (1)
  1. IMMUNATE STIM PLUS [Suspect]
     Active Substance: ANTIHEMOPHILIC FACTOR HUMAN
     Indication: FACTOR VIII DEFICIENCY
     Route: 042

REACTIONS (4)
  - Haematoma [Unknown]
  - Haemorrhagic diathesis [Unknown]
  - Epilepsy [Unknown]
  - Fall [Unknown]
